FAERS Safety Report 9785667 (Version 1)
Quarter: 2013Q4

REPORT INFORMATION
  Report Type: Spontaneous
  Country: JP (occurrence: JP)
  Receive Date: 20131227
  Receipt Date: 20131227
  Transmission Date: 20140711
  Serious: Yes (Other)
  Sender: FDA-Public Use
  Company Number: JP-009507513-1312JPN010222

PATIENT
  Sex: Female

DRUGS (1)
  1. FOSAMAC TABLETS 35MG [Suspect]
     Indication: BONE DENSITY DECREASED
     Dosage: DAILY DOSE UNKNOWN, EVERY MONDAY FOR ABOUT 5 YEARS
     Route: 048
     Dates: start: 2008

REACTIONS (9)
  - Dental operation [Unknown]
  - Maxillofacial operation [Unknown]
  - Osteonecrosis of jaw [Unknown]
  - Empyema [Unknown]
  - Tooth extraction [Unknown]
  - Toothache [Unknown]
  - Gingivitis [Unknown]
  - Impaired healing [Unknown]
  - Bone disorder [Unknown]
